FAERS Safety Report 24169019 (Version 1)
Quarter: 2024Q3

REPORT INFORMATION
  Report Type: Spontaneous
  Country: US (occurrence: US)
  Receive Date: 20240802
  Receipt Date: 20240802
  Transmission Date: 20241017
  Serious: No
  Sender: PFIZER
  Company Number: US-PFIZER INC-PV202400099591

PATIENT
  Age: 74 Year
  Sex: Female

DRUGS (2)
  1. IBRANCE [Suspect]
     Active Substance: PALBOCICLIB
     Dosage: UNK
  2. ANASTROZOLE [Concomitant]
     Active Substance: ANASTROZOLE
     Dosage: UNK

REACTIONS (2)
  - Nausea [Unknown]
  - Full blood count decreased [Unknown]

NARRATIVE: CASE EVENT DATE: 20240711
